FAERS Safety Report 19799578 (Version 1)
Quarter: 2021Q3

REPORT INFORMATION
  Report Type: Spontaneous
  Country: NL (occurrence: FR)
  Receive Date: 20210907
  Receipt Date: 20210907
  Transmission Date: 20211014
  Serious: Yes (Other)
  Sender: FDA-Public Use
  Company Number: FR-FRESENIUS KABI-FK202109511

PATIENT
  Age: 12 Year
  Sex: Male

DRUGS (4)
  1. ETOPOSIDE. [Suspect]
     Active Substance: ETOPOSIDE
     Indication: PRODUCT USED FOR UNKNOWN INDICATION
     Route: 065
  2. TEMOZOLOMIDE. [Suspect]
     Active Substance: TEMOZOLOMIDE
     Indication: PRODUCT USED FOR UNKNOWN INDICATION
     Route: 065
     Dates: end: 201810
  3. CARBOPLATIN (MANUFACTURER UNKNOWN) [Suspect]
     Active Substance: CARBOPLATIN
     Indication: PRODUCT USED FOR UNKNOWN INDICATION
     Route: 065
  4. THIOTEPA. [Suspect]
     Active Substance: THIOTEPA
     Indication: PRODUCT USED FOR UNKNOWN INDICATION
     Route: 065

REACTIONS (1)
  - Nephrotic syndrome [Not Recovered/Not Resolved]

NARRATIVE: CASE EVENT DATE: 20210802
